FAERS Safety Report 6552020-9 (Version None)
Quarter: 2009Q4

REPORT INFORMATION
  Report Type: 
  Country: None (occurrence: None)
  Receive Date: 20091215
  Receipt Date: 20090213
  Transmission Date: 20100525
  Serious: Yes (Other)
  Sender: FDA-Public Use
  Company Number: FEI2009-0322

PATIENT
  Age: 25 Year
  Sex: Female
  Weight: 73.9363 kg

DRUGS (2)
  1. PARAGARD T 380A [Suspect]
     Indication: CONTRACEPTION
     Dosage: INTRA-UTERINE
     Route: 015
     Dates: start: 20041025, end: 20090109
  2. PRENATAL VITAMIN (ERGOCALCIFEROL, ASCORBIC ACID, PYRIDOXINE HYDROCHLOR [Concomitant]

REACTIONS (6)
  - ABDOMINAL PAIN [None]
  - ABORTION SPONTANEOUS [None]
  - METRORRHAGIA [None]
  - PYELONEPHRITIS [None]
  - UNINTENDED PREGNANCY [None]
  - UTERINE HAEMORRHAGE [None]
